FAERS Safety Report 8153930-1 (Version None)
Quarter: 2012Q1

REPORT INFORMATION
  Report Type: 
  Country: None (occurrence: None)
  Receive Date: 20120221
  Receipt Date: 20120221
  Transmission Date: 20120608
  Serious: Yes (Hospitalization)
  Sender: FDA-Public Use
  Company Number: None

PATIENT
  Age: 31 Year
  Sex: Female

DRUGS (2)
  1. IPILIMUMAB [Suspect]
  2. DACARBAZINE [Concomitant]

REACTIONS (6)
  - MALAISE [None]
  - PLATELET COUNT DECREASED [None]
  - FATIGUE [None]
  - DYSPNOEA [None]
  - NAUSEA [None]
  - PLATELET COUNT INCREASED [None]
